FAERS Safety Report 8364409-6 (Version None)
Quarter: 2012Q2

REPORT INFORMATION
  Report Type: 
  Country: None (occurrence: None)
  Receive Date: 20120516
  Receipt Date: 20120511
  Transmission Date: 20120825
  Serious: Yes (Hospitalization)
  Sender: FDA-Public Use
  Company Number: US-BAYER-2012-007485

PATIENT
  Age: 22 Year
  Sex: Female
  Weight: 58.957 kg

DRUGS (14)
  1. LAMICTAL [Concomitant]
  2. SEROQUEL [Concomitant]
     Indication: DEPRESSION
     Dosage: 100 MG, QD
     Dates: start: 20091101
  3. CLONAZEPAM [Concomitant]
     Indication: ANXIETY
     Dosage: 0.5 MG, QD
     Dates: start: 20090801
  4. YAZ [Suspect]
     Indication: CONTRACEPTION
     Dosage: UNK
     Dates: start: 20090501, end: 20100101
  5. GL COCKTAIL, IV FLUIDS [Concomitant]
     Dosage: UNK
     Dates: start: 20100101
  6. TORADOL [Concomitant]
     Dosage: UNK
     Dates: start: 20100101
  7. PEPCID AC [Concomitant]
     Dosage: 20 MG, BID
     Dates: start: 20100121
  8. LITHIUM CARBONATE [Concomitant]
  9. LAMOTRIGINE [Concomitant]
     Indication: MOOD SWINGS
     Dosage: 200 MG, QD
     Dates: start: 20091101, end: 20100101
  10. BUPROPION HYDROCHLORIDE [Concomitant]
     Indication: DEPRESSION
     Dosage: 150 MG, QD
  11. ZOFRAN [Concomitant]
     Dosage: UNK
     Dates: start: 20100101
  12. DILAUDID [Concomitant]
     Dosage: UNK
     Dates: start: 20100101
  13. KLONOPIN [Concomitant]
  14. LITHIUM CARBONATE [Concomitant]
     Indication: BIPOLAR DISORDER
     Dosage: 300 MG, TID
     Dates: start: 20090901

REACTIONS (7)
  - CHOLELITHIASIS [None]
  - PAIN [None]
  - ABDOMINAL PAIN [None]
  - CHOLECYSTITIS ACUTE [None]
  - EMOTIONAL DISTRESS [None]
  - INFLAMMATION [None]
  - ANXIETY [None]
